FAERS Safety Report 6301279-1 (Version None)
Quarter: 2009Q3

REPORT INFORMATION
  Report Type: 
  Country: None (occurrence: None)
  Receive Date: 20090807
  Receipt Date: 20090729
  Transmission Date: 20100115
  Serious: Yes (Other)
  Sender: FDA-Public Use
  Company Number: SE-ASTRAZENECA-2009SE05439

PATIENT
  Age: 25998 Day
  Sex: Female
  Weight: 90 kg

DRUGS (4)
  1. ATACAND [Suspect]
     Indication: HYPERTENSION
     Route: 048
     Dates: start: 20090601
  2. ATACAND [Suspect]
     Route: 048
  3. ATACAND [Suspect]
     Route: 048
  4. LOVAZA [Concomitant]

REACTIONS (8)
  - ASTHENIA [None]
  - DIZZINESS [None]
  - HYPERHIDROSIS [None]
  - NAUSEA [None]
  - OROPHARYNGEAL PAIN [None]
  - PALPITATIONS [None]
  - RASH [None]
  - VERTIGO [None]
